FAERS Safety Report 9028168 (Version 1)
Quarter: 2013Q1

REPORT INFORMATION
  Report Type: Spontaneous
  Country: US (occurrence: US)
  Receive Date: 20130123
  Receipt Date: 20130123
  Transmission Date: 20140127
  Serious: Yes (Hospitalization, Other)
  Sender: FDA-Public Use
  Company Number: US-SANOFI-AVENTIS-2013SA001923

PATIENT
  Sex: Female

DRUGS (4)
  1. LANTUS SOLOSTAR [Suspect]
     Indication: TYPE 2 DIABETES MELLITUS
     Dosage: 30 UNITS IN THE MORNING AND 35 UNITS IN THE EVENING
     Route: 058
     Dates: start: 2007
  2. SOLOSTAR [Suspect]
     Indication: TYPE 2 DIABETES MELLITUS
     Dates: start: 2007
  3. METFORMIN [Suspect]
     Route: 065
     Dates: start: 2012
  4. FEMARA [Concomitant]

REACTIONS (4)
  - Renal failure [Unknown]
  - Breast cancer [Unknown]
  - Dehydration [Recovered/Resolved]
  - Blood glucose increased [Recovering/Resolving]
